FAERS Safety Report 6317218-3 (Version None)
Quarter: 2009Q3

REPORT INFORMATION
  Report Type: 
  Country: None (occurrence: None)
  Receive Date: 20090820
  Receipt Date: 20090817
  Transmission Date: 20100115
  Serious: Yes (Other)
  Sender: FDA-Public Use
  Company Number: DE-JNJCH-2009021462

PATIENT
  Sex: Female
  Weight: 62 kg

DRUGS (1)
  1. ROGAINE [Suspect]
     Indication: ALOPECIA
     Dosage: TEXT:UNSPECIFIED
     Route: 061
     Dates: start: 20090720, end: 20090724

REACTIONS (6)
  - DANDRUFF [None]
  - EYE PRURITUS [None]
  - LYMPHADENOPATHY [None]
  - PRURITUS [None]
  - RASH [None]
  - WRONG DRUG ADMINISTERED [None]
